FAERS Safety Report 11458351 (Version 8)
Quarter: 2017Q1

REPORT INFORMATION
  Report Type: Report from Study
  Country: CA (occurrence: CA)
  Receive Date: 20150904
  Receipt Date: 20170322
  Transmission Date: 20170428
  Serious: Yes (Other)
  Sender: FDA-Public Use
  Company Number: PHHY2014CA064712

PATIENT
  Age: 72 Year
  Sex: Female

DRUGS (6)
  1. SANDOSTATIN [Suspect]
     Active Substance: OCTREOTIDE ACETATE
     Indication: NEUROENDOCRINE TUMOUR
     Dosage: UNK, BID
     Route: 058
     Dates: start: 20140517, end: 20140526
  2. SANDOSTATIN LAR DEPOT [Suspect]
     Active Substance: OCTREOTIDE ACETATE
     Dosage: 20 MG, EVERY 3 WEEKS
     Route: 030
     Dates: start: 20160714
  3. SANDOSTATIN LAR DEPOT [Suspect]
     Active Substance: OCTREOTIDE ACETATE
     Dosage: 20 MG, QMO
     Route: 030
     Dates: start: 20140724, end: 20160713
  4. SANDOSTATIN LAR DEPOT [Suspect]
     Active Substance: OCTREOTIDE ACETATE
     Dosage: 20 MG, EVERY 3 WEEKS
     Route: 030
     Dates: start: 20160805
  5. CORTISONE [Concomitant]
     Active Substance: CORTISONE\HYDROCORTISONE
     Indication: PRODUCT USED FOR UNKNOWN INDICATION
     Route: 065
  6. SANDOSTATIN LAR DEPOT [Suspect]
     Active Substance: OCTREOTIDE ACETATE
     Indication: NEUROENDOCRINE TUMOUR
     Dosage: 10 MG, QMO
     Route: 030
     Dates: start: 20140529, end: 20140626

REACTIONS (23)
  - Wound [Unknown]
  - Inappropriate schedule of drug administration [Unknown]
  - Injection site pain [Unknown]
  - Abdominal pain [Recovering/Resolving]
  - Diarrhoea [Unknown]
  - Lymphoma [Unknown]
  - Second primary malignancy [Unknown]
  - Malignant neoplasm progression [Unknown]
  - Heart rate decreased [Unknown]
  - Drug ineffective [Unknown]
  - Blood pressure diastolic decreased [Unknown]
  - Neoplasm progression [Unknown]
  - Peripheral swelling [Unknown]
  - Wound complication [Unknown]
  - Blood pressure systolic increased [Unknown]
  - Injection site mass [Unknown]
  - Dizziness [Unknown]
  - Malaise [Unknown]
  - Oedema peripheral [Unknown]
  - Nausea [Unknown]
  - Headache [Unknown]
  - Blood pressure increased [Unknown]
  - Abdominal tenderness [Unknown]

NARRATIVE: CASE EVENT DATE: 20140521
